FAERS Safety Report 9649044 (Version 29)
Quarter: 2015Q3

REPORT INFORMATION
  Report Type: Report from Study
  Country: CA (occurrence: CA)
  Receive Date: 20131028
  Receipt Date: 20150830
  Transmission Date: 20151125
  Serious: Yes (Other)
  Sender: FDA-Public Use
  Company Number: CA-ROCHE-1284287

PATIENT
  Age: 58 Year
  Sex: Female
  Weight: 87 kg

DRUGS (8)
  1. PERJETA [Suspect]
     Active Substance: PERTUZUMAB
     Route: 042
     Dates: start: 20131015, end: 20140422
  2. HERCEPTIN [Suspect]
     Active Substance: TRASTUZUMAB
     Indication: HER-2 POSITIVE BREAST CANCER
     Route: 042
     Dates: start: 201310
  3. CODEINE [Suspect]
     Active Substance: CODEINE
     Indication: COUGH
     Route: 048
  4. TAXOTERE [Suspect]
     Active Substance: DOCETAXEL
     Indication: HER-2 POSITIVE BREAST CANCER
     Route: 042
     Dates: start: 20130812, end: 201311
  5. COVERSYL [Concomitant]
     Active Substance: PERINDOPRIL
     Route: 048
     Dates: end: 201311
  6. PROCHLORPERAZINE. [Concomitant]
     Active Substance: PROCHLORPERAZINE
     Route: 065
     Dates: end: 201311
  7. PERJETA [Suspect]
     Active Substance: PERTUZUMAB
     Indication: HER-2 POSITIVE BREAST CANCER
     Dosage: LOADING DOSE
     Route: 042
     Dates: start: 20130927, end: 20140422
  8. KADCYLA [Suspect]
     Active Substance: ADO-TRASTUZUMAB EMTANSINE
     Indication: HER-2 POSITIVE BREAST CANCER
     Route: 042
     Dates: start: 20140602

REACTIONS (45)
  - Fatigue [Unknown]
  - Hot flush [Not Recovered/Not Resolved]
  - Hyperhidrosis [Not Recovered/Not Resolved]
  - Dry skin [Not Recovered/Not Resolved]
  - Dyspnoea [Unknown]
  - Red cell distribution width increased [Unknown]
  - Cough [Recovered/Resolved]
  - Pulmonary oedema [Unknown]
  - Fatigue [Unknown]
  - Mucosal inflammation [Unknown]
  - Hyperaesthesia [Not Recovered/Not Resolved]
  - Drug effect decreased [Unknown]
  - Paraesthesia [Not Recovered/Not Resolved]
  - Vomiting [Recovered/Resolved]
  - Pain in extremity [Not Recovered/Not Resolved]
  - Neuralgia [Not Recovered/Not Resolved]
  - Food poisoning [Recovered/Resolved]
  - Constipation [Unknown]
  - Paraesthesia [Not Recovered/Not Resolved]
  - Blood alkaline phosphatase increased [Unknown]
  - Mean platelet volume decreased [Unknown]
  - Pain [Not Recovered/Not Resolved]
  - Somnolence [Unknown]
  - Pollakiuria [Not Recovered/Not Resolved]
  - Epistaxis [Not Recovered/Not Resolved]
  - Hypotension [Recovered/Resolved]
  - Asthenia [Unknown]
  - Onychoclasis [Not Recovered/Not Resolved]
  - Flushing [Not Recovered/Not Resolved]
  - Pyrexia [Unknown]
  - Dry mouth [Not Recovered/Not Resolved]
  - Decreased appetite [Not Recovered/Not Resolved]
  - Swelling [Not Recovered/Not Resolved]
  - Diarrhoea [Unknown]
  - Weight decreased [Not Recovered/Not Resolved]
  - Nasopharyngitis [Recovered/Resolved]
  - Peripheral sensorimotor neuropathy [Not Recovered/Not Resolved]
  - Hypoacusis [Not Recovered/Not Resolved]
  - Myalgia [Unknown]
  - White blood cell count decreased [Recovered/Resolved]
  - Disease progression [Unknown]
  - Abdominal pain upper [Recovered/Resolved]
  - Dyspepsia [Not Recovered/Not Resolved]
  - Influenza [Recovered/Resolved]
  - Cough [Unknown]

NARRATIVE: CASE EVENT DATE: 20130812
